FAERS Safety Report 20799398 (Version 1)
Quarter: 2022Q2

REPORT INFORMATION
  Report Type: Report from Study
  Country: RO (occurrence: RO)
  Receive Date: 20220508
  Receipt Date: 20220508
  Transmission Date: 20220720
  Serious: Yes (Death)
  Sender: FDA-Public Use
  Company Number: RO-ABBVIE-22K-135-4383946-00

PATIENT
  Age: 73 Year
  Sex: Male

DRUGS (2)
  1. CARBIDOPA\LEVODOPA [Suspect]
     Active Substance: CARBIDOPA\LEVODOPA
     Indication: Parkinson^s disease
     Dosage: DM=8.50 DC=3.50 ED=1.80 NRED=4; DMN=0.00 DCN=0.00 EDN=0.00 NREDN=0
     Route: 050
     Dates: start: 20201007, end: 20220505
  2. CARBIDOPA\LEVODOPA [Suspect]
     Active Substance: CARBIDOPA\LEVODOPA

REACTIONS (1)
  - Cardio-respiratory arrest [Fatal]

NARRATIVE: CASE EVENT DATE: 20220505
